FAERS Safety Report 9099219 (Version 1)
Quarter: 2013Q1

REPORT INFORMATION
  Report Type: Spontaneous
  Country: US (occurrence: US)
  Receive Date: 20130213
  Receipt Date: 20130213
  Transmission Date: 20140127
  Serious: No
  Sender: FDA-Public Use
  Company Number: US-TEVA-385263USA

PATIENT
  Sex: Male

DRUGS (2)
  1. PROAIR HFA [Suspect]
  2. QVAR [Suspect]

REACTIONS (1)
  - Dyspnoea [Unknown]
